FAERS Safety Report 21863926 (Version 1)
Quarter: 2023Q1

REPORT INFORMATION
  Report Type: Other
  Country: US (occurrence: None)
  Receive Date: 20230116
  Receipt Date: 20230116
  Transmission Date: 20230418
  Serious: No
  Sender: FDA-Public Use
  Company Number: US-ROCHE-3263266

PATIENT
  Age: 53 Year
  Sex: Female
  Weight: 66.738 kg

DRUGS (4)
  1. OCREVUS [Suspect]
     Active Substance: OCRELIZUMAB
     Indication: Relapsing multiple sclerosis
     Dosage: YES; 600MG EVERY 6 MONTHS; PREVIOUS INFUSION: 03/DEC/2020
     Route: 042
  2. OCREVUS [Suspect]
     Active Substance: OCRELIZUMAB
     Indication: Primary progressive multiple sclerosis
  3. OXYBUTYNIN [Concomitant]
     Active Substance: OXYBUTYNIN
     Route: 048
  4. DALFAMPRIDINE [Concomitant]
     Active Substance: DALFAMPRIDINE
     Route: 048

REACTIONS (2)
  - Tinnitus [Not Recovered/Not Resolved]
  - COVID-19 [Recovered/Resolved]

NARRATIVE: CASE EVENT DATE: 20220801
